FAERS Safety Report 6905615-4 (Version None)
Quarter: 2010Q3

REPORT INFORMATION
  Report Type: 
  Country: None (occurrence: None)
  Receive Date: 20100804
  Receipt Date: 20100730
  Transmission Date: 20110219
  Serious: Yes (Hospitalization)
  Sender: FDA-Public Use
  Company Number: DE-BRISTOL-MYERS SQUIBB COMPANY-15218712

PATIENT
  Age: 74 Year
  Sex: Male
  Weight: 60 kg

DRUGS (18)
  1. CISPLATIN [Suspect]
     Indication: NON-SMALL CELL LUNG CANCER
     Dosage: 28JUN2010- 2ND AND MOST RECENT INF
     Route: 042
     Dates: start: 20100607
  2. GEMCITABINE [Suspect]
     Indication: NON-SMALL CELL LUNG CANCER
     Dosage: 14JUN2010- 2ND INFUSION, 28JUN2010- 3RD AND MOST RECENT INF
     Route: 042
     Dates: start: 20100607
  3. ASPIRIN [Concomitant]
     Indication: HYPERTENSION
     Route: 065
     Dates: start: 20000101
  4. TOREM [Concomitant]
     Indication: HYPERTENSION
     Dosage: 1 DF = 5 UNIT NOT MENTIONED.
     Route: 065
     Dates: start: 20000101
  5. CARVEDILOL [Concomitant]
     Indication: HYPERTENSION
     Route: 065
     Dates: start: 20000101
  6. ENALAPRIL [Concomitant]
     Indication: HYPERTENSION
     Route: 065
     Dates: start: 20000101
  7. LOCOL [Concomitant]
     Indication: BLOOD CHOLESTEROL
     Route: 065
     Dates: start: 20100101
  8. OMEPRAZOLE [Concomitant]
     Indication: GASTRITIS
     Route: 065
     Dates: start: 20090101
  9. TAMSULOSIN HCL [Concomitant]
     Indication: BENIGN PROSTATIC HYPERPLASIA
     Route: 065
     Dates: start: 19950101
  10. DURAGESIC-100 [Concomitant]
     Indication: ABDOMINAL PAIN UPPER
     Route: 065
     Dates: start: 20100513
  11. DURAGESIC-100 [Concomitant]
     Indication: CHEST PAIN
     Route: 065
     Dates: start: 20100513
  12. BERLOSIN [Concomitant]
     Indication: ABDOMINAL PAIN UPPER
     Route: 065
     Dates: start: 20100513
  13. BERLOSIN [Concomitant]
     Indication: CHEST PAIN
     Route: 065
     Dates: start: 20100513
  14. METOCLOPRAMIDE [Concomitant]
     Indication: ABDOMINAL PAIN UPPER
     Route: 065
     Dates: start: 20100513
  15. ARTERENOL [Concomitant]
     Indication: HAEMOPTYSIS
     Route: 065
     Dates: start: 20100622, end: 20100625
  16. FORTIMEL [Concomitant]
     Indication: SUPPLEMENTATION THERAPY
     Route: 065
     Dates: start: 20100622
  17. NEUPOGEN [Concomitant]
     Indication: LEUKOPENIA
     Route: 065
     Dates: start: 20100621, end: 20100621
  18. DECORTIN [Concomitant]
     Indication: CHRONIC OBSTRUCTIVE PULMONARY DISEASE
     Dates: start: 20100501, end: 20100526

REACTIONS (1)
  - CEREBRAL HAEMORRHAGE [None]
